FAERS Safety Report 9018688 (Version 3)
Quarter: 2013Q1

REPORT INFORMATION
  Report Type: Spontaneous
  Country: CA (occurrence: CA)
  Receive Date: 20130118
  Receipt Date: 20130321
  Transmission Date: 20140127
  Serious: Yes (Hospitalization)
  Sender: FDA-Public Use
  Company Number: CA-AMGEN-CANSP2013001711

PATIENT
  Age: 80 Year
  Sex: Female
  Weight: 47.73 kg

DRUGS (1)
  1. PROLIA [Suspect]
     Indication: OSTEOPOROSIS POSTMENOPAUSAL

REACTIONS (6)
  - Limb injury [Unknown]
  - Wound haemorrhage [Unknown]
  - Wound haematoma [Unknown]
  - Infection [Unknown]
  - Fall [Unknown]
  - Ligament sprain [Unknown]
